FAERS Safety Report 10394297 (Version 1)
Quarter: 2014Q3

REPORT INFORMATION
  Report Type: Spontaneous
  Country: US (occurrence: US)
  Receive Date: 20140819
  Receipt Date: 20140819
  Transmission Date: 20150326
  Serious: Yes (Hospitalization, Other)
  Sender: FDA-Public Use
  Company Number: US-009507513-1408USA010730

PATIENT
  Sex: Female
  Weight: 67.12 kg

DRUGS (1)
  1. NUVARING [Suspect]
     Active Substance: ETHINYL ESTRADIOL\ETONOGESTREL
     Indication: PRODUCT USED FOR UNKNOWN INDICATION
     Dosage: UNK
     Route: 067
     Dates: start: 20120112, end: 201209

REACTIONS (13)
  - Iron deficiency anaemia [Unknown]
  - Splenic infarction [Unknown]
  - Embolic stroke [Recovering/Resolving]
  - Depression [Unknown]
  - Acute myocardial infarction [Recovering/Resolving]
  - Vitamin B12 deficiency [Unknown]
  - Atelectasis [Unknown]
  - Mitral valve disease [Recovered/Resolved]
  - Cardiac operation [Unknown]
  - Pleural effusion [Unknown]
  - Hypercoagulation [Unknown]
  - Clear cell renal cell carcinoma [Unknown]
  - Cardiac ventricular disorder [Recovered/Resolved]

NARRATIVE: CASE EVENT DATE: 201209
